FAERS Safety Report 13688978 (Version 1)
Quarter: 2017Q2

REPORT INFORMATION
  Report Type: Spontaneous
  Country: US (occurrence: US)
  Receive Date: 20170623
  Receipt Date: 20170623
  Transmission Date: 20170830
  Serious: Yes (Death, Other)
  Sender: FDA-Public Use
  Company Number: None

PATIENT
  Age: 49 Year
  Sex: Female
  Weight: 70.37 kg

DRUGS (1)
  1. ROPINOROLE 1 MG [Suspect]
     Active Substance: ROPINIROLE
     Indication: RESTLESS LEGS SYNDROME
     Route: 048
     Dates: start: 20170606, end: 20170623

REACTIONS (7)
  - Paraesthesia [None]
  - Diarrhoea [None]
  - Sleep disorder [None]
  - Dry mouth [None]
  - Product substitution issue [None]
  - Swelling face [None]
  - Nausea [None]

NARRATIVE: CASE EVENT DATE: 20170620
